FAERS Safety Report 24278736 (Version 1)
Quarter: 2024Q3

REPORT INFORMATION
  Report Type: Spontaneous
  Country: DK (occurrence: DK)
  Receive Date: 20240903
  Receipt Date: 20240903
  Transmission Date: 20241017
  Serious: Yes (Hospitalization, Other)
  Sender: FRESENIUS KABI
  Company Number: None

PATIENT
  Age: 71 Year
  Sex: Male
  Weight: 75 kg

DRUGS (3)
  1. OXALIPLATIN [Suspect]
     Active Substance: OXALIPLATIN
     Indication: Gastrointestinal carcinoma
     Dosage: FORM: CONCENTRATE FOR SOLUTION FOR INFUSION
     Route: 042
     Dates: start: 20240723
  2. CAPECITABINE [Suspect]
     Active Substance: CAPECITABINE
     Indication: Gastrointestinal carcinoma
     Dosage: 150 MG TWICE DAILY FOR 14 DAYS EVERY THIRD WEEK?FORM: FILM COATED TABLET
     Route: 048
     Dates: start: 20240723
  3. CAPECITABINE [Suspect]
     Active Substance: CAPECITABINE
     Indication: Gastrointestinal carcinoma
     Dosage: 1500 MG TWICE DAILY FOR 14 DAYS EVERY THIRD WEEK.?FORM: FILM COATED TABLET
     Route: 048
     Dates: start: 20240723

REACTIONS (2)
  - Blindness transient [Recovered/Resolved]
  - Abnormal sensation in eye [Recovered/Resolved]

NARRATIVE: CASE EVENT DATE: 20240723
